FAERS Safety Report 5441476-0 (Version None)
Quarter: 2007Q3

REPORT INFORMATION
  Report Type: 
  Country: None (occurrence: None)
  Receive Date: 20070828
  Receipt Date: 20070814
  Transmission Date: 20080115
  Serious: Yes (Death)
  Sender: FDA-Public Use
  Company Number: 013031

PATIENT
  Age: 76 Year
  Sex: Female

DRUGS (6)
  1. PRIALT [Suspect]
     Indication: BREAST CANCER METASTATIC
     Dosage: 0.005 UG, ONCE/HOUR, INTRATHECAL, 0.02 UG, ONCE/HOUR, INTRATHECAL
     Route: 037
  2. PRIALT [Suspect]
     Indication: CANCER PAIN
     Dosage: 0.005 UG, ONCE/HOUR, INTRATHECAL, 0.02 UG, ONCE/HOUR, INTRATHECAL
     Route: 037
  3. DILAUDID [Concomitant]
  4. DROPERIDOL [Concomitant]
  5. LIORESAL [Concomitant]
  6. MORPHINE [Concomitant]

REACTIONS (5)
  - BREAST CANCER METASTATIC [None]
  - MALIGNANT NEOPLASM PROGRESSION [None]
  - METASTASES TO BONE [None]
  - METASTASES TO BONE MARROW [None]
  - METASTASES TO LIVER [None]
